FAERS Safety Report 5351123-4 (Version None)
Quarter: 2007Q2

REPORT INFORMATION
  Report Type: 
  Country: None (occurrence: None)
  Receive Date: 20070608
  Receipt Date: 20070606
  Transmission Date: 20071010
  Serious: Yes (Hospitalization)
  Sender: FDA-Public Use
  Company Number: US-BRISTOL-MYERS SQUIBB COMPANY-13804901

PATIENT
  Age: 59 Year
  Sex: Female
  Weight: 52 kg

DRUGS (30)
  1. CETUXIMAB [Suspect]
     Indication: BREAST CANCER METASTATIC
     Route: 040
     Dates: start: 20070530, end: 20070530
  2. CARBOPLATIN [Suspect]
     Indication: BREAST CANCER METASTATIC
     Route: 040
     Dates: start: 20070530, end: 20070530
  3. BISACODYL [Concomitant]
     Route: 054
  4. BISACODYL [Concomitant]
     Route: 048
  5. ALBUTEROL [Concomitant]
     Route: 055
  6. AZELASTINE HCL [Concomitant]
     Route: 045
  7. DOCUSATE SODIUM [Concomitant]
     Route: 048
  8. FEXOFENADINE HCL [Concomitant]
     Route: 048
  9. GABAPENTIN [Concomitant]
     Route: 048
  10. LACTULOSE [Concomitant]
     Route: 048
  11. LATANOPROST [Concomitant]
     Route: 047
  12. LORAZEPAM [Concomitant]
     Route: 048
  13. LORAZEPAM [Concomitant]
     Route: 048
  14. METHYLPHENIDATE TABS 5MG [Concomitant]
     Route: 048
  15. METOCLOPRAMIDE HCL [Concomitant]
     Route: 048
  16. OMEPRAZOLE [Concomitant]
     Route: 048
  17. OXYCODONE HCL [Concomitant]
     Route: 048
  18. SENNOSIDES [Concomitant]
     Route: 048
  19. BACLOFEN [Concomitant]
     Route: 048
  20. DEXAMETHASONE 0.5MG TAB [Concomitant]
     Route: 048
  21. PIMECROLIMUS [Concomitant]
     Route: 061
  22. FLUTICASONE PROPIONATE [Concomitant]
     Route: 055
  23. LACTULOSE [Concomitant]
     Route: 048
  24. ATORVASTATIN CALCIUM [Concomitant]
     Route: 048
  25. POLYETHYLENE GLYCOL [Concomitant]
     Route: 048
  26. NYSTATIN [Concomitant]
     Route: 061
  27. MIRTAZAPINE [Concomitant]
  28. MORPHINE [Concomitant]
     Route: 048
  29. MORPHINE [Concomitant]
     Route: 048
  30. POTASSIUM CHLORIDE [Concomitant]
     Route: 048

REACTIONS (3)
  - CONFUSIONAL STATE [None]
  - ELECTROLYTE IMBALANCE [None]
  - TREMOR [None]
